FAERS Safety Report 6923328-X (Version None)
Quarter: 2010Q3

REPORT INFORMATION
  Report Type: 
  Country: None (occurrence: None)
  Receive Date: 20100813
  Receipt Date: 20100714
  Transmission Date: 20110219
  Serious: Yes (Hospitalization, Other)
  Sender: FDA-Public Use
  Company Number: PHEH2006US15226

PATIENT
  Sex: Female

DRUGS (17)
  1. AREDIA [Suspect]
  2. ZOMETA [Suspect]
  3. NORCO [Concomitant]
  4. DIOVAN [Concomitant]
  5. LIPITOR [Concomitant]
  6. DARVOCET-N 100 [Concomitant]
  7. XANAX [Concomitant]
  8. PERCOCET [Concomitant]
  9. IBUPROFEN [Concomitant]
  10. ASPIRIN [Concomitant]
  11. MULTI-VITAMIN [Concomitant]
  12. MAALOX [Concomitant]
  13. AVALIDE [Concomitant]
  14. NORVASC [Concomitant]
  15. HYDRODIURIL [Concomitant]
  16. PROTONIX [Concomitant]
  17. COMPAZINE [Concomitant]

REACTIONS (70)
  - ABDOMINAL DISTENSION [None]
  - ABDOMINAL PAIN [None]
  - ABDOMINAL PAIN UPPER [None]
  - ACQUIRED OESOPHAGEAL WEB [None]
  - ANKLE FRACTURE [None]
  - ANXIETY [None]
  - AORTIC VALVE SCLEROSIS [None]
  - ARTHRALGIA [None]
  - ARTHROPATHY [None]
  - ASTHENIA [None]
  - BACK PAIN [None]
  - BONE NEOPLASM MALIGNANT [None]
  - BURSITIS [None]
  - CAROTID ARTERY STENOSIS [None]
  - CATHETERISATION CARDIAC [None]
  - CHEST PAIN [None]
  - DECREASED INTEREST [None]
  - DIARRHOEA [None]
  - DIVERTICULUM [None]
  - DUODENITIS [None]
  - DYSPHONIA [None]
  - DYSPNOEA [None]
  - EJECTION FRACTION DECREASED [None]
  - ERYTHEMA [None]
  - FLUID RETENTION [None]
  - GASTROINTESTINAL SOUNDS ABNORMAL [None]
  - GASTROOESOPHAGEAL REFLUX DISEASE [None]
  - GENERAL PHYSICAL HEALTH DETERIORATION [None]
  - GOUTY ARTHRITIS [None]
  - GRANULOMA [None]
  - HEPATIC STEATOSIS [None]
  - HIATUS HERNIA [None]
  - HYPOAESTHESIA [None]
  - HYPOKALAEMIA [None]
  - INTERVERTEBRAL DISC DEGENERATION [None]
  - INTERVERTEBRAL DISC PROTRUSION [None]
  - JOINT SWELLING [None]
  - LEFT VENTRICULAR DYSFUNCTION [None]
  - LUMBAR RADICULOPATHY [None]
  - LUMBAR SPINAL STENOSIS [None]
  - MACULAR DEGENERATION [None]
  - MITRAL VALVE INCOMPETENCE [None]
  - MUSCULOSKELETAL PAIN [None]
  - MYOCARDIAL INFARCTION [None]
  - NAUSEA [None]
  - NECK PAIN [None]
  - OEDEMA [None]
  - OESOPHAGEAL HYPOMOTILITY [None]
  - OROPHARYNGEAL PAIN [None]
  - OSTEOARTHRITIS [None]
  - OSTEONECROSIS OF JAW [None]
  - OSTEOPENIA [None]
  - PAIN [None]
  - PAIN IN EXTREMITY [None]
  - PARAESTHESIA [None]
  - PERIODONTAL DISEASE [None]
  - PLEURAL EFFUSION [None]
  - PRESBYOPIA [None]
  - PRESYNCOPE [None]
  - SINUSITIS [None]
  - SMALL INTESTINAL OBSTRUCTION [None]
  - SPINAL OSTEOARTHRITIS [None]
  - SPONDYLOLISTHESIS [None]
  - SWELLING [None]
  - SYNCOPE [None]
  - THROAT IRRITATION [None]
  - VENTRICULAR HYPOKINESIA [None]
  - VITREOUS FLOATERS [None]
  - VOMITING [None]
  - WALKING AID USER [None]
